FAERS Safety Report 16446727 (Version 2)
Quarter: 2019Q3

REPORT INFORMATION
  Report Type: Report from Study
  Country: JP (occurrence: JP)
  Receive Date: 20190618
  Receipt Date: 20190716
  Transmission Date: 20191004
  Serious: Yes (Death, Other)
  Sender: FDA-Public Use
  Company Number: PHJP2019JP007033

PATIENT
  Sex: Male

DRUGS (36)
  1. ARZERRA [Suspect]
     Active Substance: OFATUMUMAB
     Dosage: 2000 MG, UNK
     Route: 041
     Dates: start: 20151120
  2. ARZERRA [Suspect]
     Active Substance: OFATUMUMAB
     Dosage: 2000 MG, UNK
     Route: 041
     Dates: start: 20160127, end: 20160127
  3. ARZERRA [Suspect]
     Active Substance: OFATUMUMAB
     Indication: CHRONIC LYMPHOCYTIC LEUKAEMIA
     Dosage: 300 MG, UNK
     Route: 041
     Dates: start: 20151030
  4. ARZERRA [Suspect]
     Active Substance: OFATUMUMAB
     Dosage: 2000 MG, UNK
     Route: 041
     Dates: start: 20151221
  5. PARACETAMOL [Concomitant]
     Active Substance: ACETAMINOPHEN
     Indication: PREMEDICATION
     Dosage: 400 MG, UNK
     Route: 065
     Dates: start: 20151030
  6. PARACETAMOL [Concomitant]
     Active Substance: ACETAMINOPHEN
     Dosage: 400 MG, UNK
     Route: 065
     Dates: start: 20151120
  7. VENA [Concomitant]
     Active Substance: DIPHENHYDRAMINE HYDROCHLORIDE
     Dosage: 40 MG, UNK
     Route: 048
     Dates: start: 20151221
  8. ARZERRA [Suspect]
     Active Substance: OFATUMUMAB
     Dosage: 2000 MG, UNK
     Route: 041
     Dates: start: 20151204
  9. PREDNISOLONE. [Concomitant]
     Active Substance: PREDNISOLONE
     Indication: PREMEDICATION
     Dosage: 125 MG, UNK
     Route: 065
     Dates: start: 20151030
  10. PREDNISOLONE. [Concomitant]
     Active Substance: PREDNISOLONE
     Dosage: 125 MG, UNK
     Route: 065
     Dates: start: 20151228
  11. PREDNISOLONE. [Concomitant]
     Active Substance: PREDNISOLONE
     Dosage: 125 MG, UNK
     Route: 065
     Dates: start: 20160127
  12. PARACETAMOL [Concomitant]
     Active Substance: ACETAMINOPHEN
     Dosage: 400 MG, UNK
     Route: 065
     Dates: start: 20151127
  13. VENA [Concomitant]
     Active Substance: DIPHENHYDRAMINE HYDROCHLORIDE
     Indication: PREMEDICATION
     Dosage: 50 MG, UNK
     Route: 048
     Dates: start: 20151030
  14. VENA [Concomitant]
     Active Substance: DIPHENHYDRAMINE HYDROCHLORIDE
     Dosage: 50 MG, UNK
     Route: 048
     Dates: start: 20151113
  15. VENA [Concomitant]
     Active Substance: DIPHENHYDRAMINE HYDROCHLORIDE
     Dosage: 20 MG, UNK
     Route: 048
     Dates: start: 20151204
  16. ARZERRA [Suspect]
     Active Substance: OFATUMUMAB
     Dosage: 2000 MG, UNK
     Route: 041
     Dates: start: 20151106
  17. PREDNISOLONE. [Concomitant]
     Active Substance: PREDNISOLONE
     Dosage: 125 MG, UNK
     Route: 065
     Dates: start: 20151127
  18. PARACETAMOL [Concomitant]
     Active Substance: ACETAMINOPHEN
     Dosage: 400 MG, UNK
     Route: 065
     Dates: start: 20151106
  19. PARACETAMOL [Concomitant]
     Active Substance: ACETAMINOPHEN
     Dosage: 400 MG, UNK
     Route: 065
     Dates: start: 20151204
  20. VENA [Concomitant]
     Active Substance: DIPHENHYDRAMINE HYDROCHLORIDE
     Dosage: 50 MG, UNK
     Route: 048
     Dates: start: 20151106
  21. ARZERRA [Suspect]
     Active Substance: OFATUMUMAB
     Dosage: 2000 MG, UNK
     Route: 041
     Dates: start: 20151228
  22. PREDNISOLONE. [Concomitant]
     Active Substance: PREDNISOLONE
     Dosage: 125 MG, UNK
     Route: 065
     Dates: start: 20151113
  23. PREDNISOLONE. [Concomitant]
     Active Substance: PREDNISOLONE
     Dosage: 125 MG, UNK
     Route: 065
     Dates: start: 20151221
  24. VENA [Concomitant]
     Active Substance: DIPHENHYDRAMINE HYDROCHLORIDE
     Dosage: 20 MG, UNK
     Route: 048
     Dates: start: 20151127
  25. ARZERRA [Suspect]
     Active Substance: OFATUMUMAB
     Dosage: 2000 MG, UNK
     Route: 041
     Dates: start: 20151113
  26. PREDNISOLONE. [Concomitant]
     Active Substance: PREDNISOLONE
     Dosage: 125 MG, UNK
     Route: 065
     Dates: start: 20151106
  27. VENA [Concomitant]
     Active Substance: DIPHENHYDRAMINE HYDROCHLORIDE
     Dosage: 20 MG, UNK
     Route: 048
     Dates: start: 20151228
  28. PREDNISOLONE. [Concomitant]
     Active Substance: PREDNISOLONE
     Dosage: 125 MG, UNK
     Route: 065
     Dates: start: 20151120
  29. PREDNISOLONE. [Concomitant]
     Active Substance: PREDNISOLONE
     Dosage: 125 MG, UNK
     Route: 065
     Dates: start: 20151204
  30. PARACETAMOL [Concomitant]
     Active Substance: ACETAMINOPHEN
     Dosage: 400 MG, UNK
     Route: 065
     Dates: start: 20151221
  31. VENA [Concomitant]
     Active Substance: DIPHENHYDRAMINE HYDROCHLORIDE
     Dosage: 20 MG, UNK
     Route: 048
     Dates: start: 20151120
  32. VENA [Concomitant]
     Active Substance: DIPHENHYDRAMINE HYDROCHLORIDE
     Dosage: 20 MG, UNK
     Route: 048
     Dates: start: 20160127
  33. ARZERRA [Suspect]
     Active Substance: OFATUMUMAB
     Dosage: 2000 MG, UNK
     Route: 041
     Dates: start: 20151127
  34. PARACETAMOL [Concomitant]
     Active Substance: ACETAMINOPHEN
     Dosage: 400 MG, UNK
     Route: 065
     Dates: start: 20151113
  35. PARACETAMOL [Concomitant]
     Active Substance: ACETAMINOPHEN
     Dosage: 400 MG, UNK
     Route: 065
     Dates: start: 20151228
  36. PARACETAMOL [Concomitant]
     Active Substance: ACETAMINOPHEN
     Dosage: 400 MG, UNK
     Route: 065
     Dates: start: 20160127

REACTIONS (6)
  - Somnolence [Not Recovered/Not Resolved]
  - Pyrexia [Recovering/Resolving]
  - Pyelonephritis [Fatal]
  - Arrhythmia [Recovered/Resolved]
  - Feeling abnormal [Not Recovered/Not Resolved]
  - Dry mouth [Recovered/Resolved]

NARRATIVE: CASE EVENT DATE: 20151106
